FAERS Safety Report 20566288 (Version 1)
Quarter: 2022Q1

REPORT INFORMATION
  Report Type: Spontaneous
  Country: US (occurrence: None)
  Receive Date: 20220308
  Receipt Date: 20220308
  Transmission Date: 20220424
  Serious: Yes (Death, Hospitalization)
  Sender: FDA-Public Use
  Company Number: None

PATIENT
  Sex: Male
  Weight: 89.6 kg

DRUGS (6)
  1. ONCASPAR [Suspect]
     Active Substance: PEGASPARGASE
     Dates: end: 20170503
  2. CYCLOPHOSPHAMIDE [Suspect]
     Active Substance: CYCLOPHOSPHAMIDE
     Dates: end: 20170419
  3. CYTARABINE [Suspect]
     Active Substance: CYTARABINE
     Dates: end: 20170429
  4. DAUNORUBICIN [Suspect]
     Active Substance: DAUNORUBICIN
     Dates: end: 20170412
  5. DEXAMETHASONE [Suspect]
     Active Substance: DEXAMETHASONE
     Dates: end: 20170411
  6. METHOTREXATE [Suspect]
     Active Substance: METHOTREXATE
     Dates: end: 20170503

REACTIONS (7)
  - Pneumonia [None]
  - Septic shock [None]
  - Mucormycosis [None]
  - Hyperbilirubinaemia [None]
  - Lactic acidosis [None]
  - Pulmonary embolism [None]
  - Fungal infection [None]

NARRATIVE: CASE EVENT DATE: 20170513
